FAERS Safety Report 4534873-9 (Version None)
Quarter: 2004Q4

REPORT INFORMATION
  Report Type: 
  Country: None (occurrence: None)
  Receive Date: 20041222
  Receipt Date: 20040524
  Transmission Date: 20050328
  Serious: No
  Sender: FDA-Public Use
  Company Number: US-BRISTOL-MYERS SQUIBB COMPANY-12594537

PATIENT
  Age: 77 Year
  Sex: Female
  Weight: 66 kg

DRUGS (7)
  1. PRAVACHOL [Suspect]
     Indication: BLOOD CHOLESTEROL INCREASED
     Route: 048
  2. ATENOLOL [Concomitant]
  3. ETODOLAC [Concomitant]
  4. LOTREL [Concomitant]
  5. LEVOXYL [Concomitant]
  6. HYDROCHLOROTHIAZIDE [Concomitant]
  7. FOSAMAX [Concomitant]

REACTIONS (2)
  - DYSPHAGIA [None]
  - THROAT IRRITATION [None]
